FAERS Safety Report 7201589-X (Version None)
Quarter: 2010Q4

REPORT INFORMATION
  Report Type: 
  Country: None (occurrence: None)
  Receive Date: 20101216
  Receipt Date: 20101207
  Transmission Date: 20110411
  Serious: Yes (Death, Hospitalization)
  Sender: FDA-Public Use
  Company Number: ALA_01165_2010

PATIENT
  Sex: Female

DRUGS (1)
  1. REGLAN [Suspect]
     Indication: NAUSEA
     Dosage: (DF ORAL)
     Route: 048
     Dates: start: 20081202, end: 20081216

REACTIONS (1)
  - DEATH [None]
